FAERS Safety Report 15770324 (Version 1)
Quarter: 2018Q4

REPORT INFORMATION
  Report Type: Spontaneous
  Country: US (occurrence: US)
  Receive Date: 20181228
  Receipt Date: 20181228
  Transmission Date: 20190205
  Serious: Yes (Other)
  Sender: FDA-Public Use
  Company Number: US-AUROBINDO-AUR-APL-2018-060826

PATIENT
  Age: 66 Year
  Sex: Female

DRUGS (3)
  1. METOPROLOL SUCCINATE. [Concomitant]
     Active Substance: METOPROLOL SUCCINATE
     Indication: ATRIAL FIBRILLATION
     Dosage: EXTENDED-RELEASE
     Dates: start: 20160409
  2. FLECAINIDE [Suspect]
     Active Substance: FLECAINIDE
     Indication: ATRIAL FIBRILLATION
     Route: 065
     Dates: start: 20160409, end: 20160606
  3. APIXABAN [Concomitant]
     Active Substance: APIXABAN
     Indication: ANTICOAGULANT THERAPY
     Dates: start: 20160409

REACTIONS (4)
  - Atrioventricular block first degree [Recovered/Resolved]
  - Toxicity to various agents [Recovered/Resolved]
  - Sinoatrial block [Recovered/Resolved]
  - Sinus bradycardia [Recovered/Resolved]

NARRATIVE: CASE EVENT DATE: 20160604
